FAERS Safety Report 7902431-1 (Version None)
Quarter: 2011Q4

REPORT INFORMATION
  Report Type: 
  Country: None (occurrence: None)
  Receive Date: 20111108
  Receipt Date: 20111102
  Transmission Date: 20120403
  Serious: Yes (Hospitalization, Other)
  Sender: FDA-Public Use
  Company Number: JP-CEPHALON-2010003512

PATIENT
  Sex: Female

DRUGS (21)
  1. LANSOPRAZOLE [Concomitant]
  2. TREANDA [Suspect]
     Route: 042
     Dates: start: 20100603, end: 20100604
  3. TEPRENONE [Concomitant]
  4. IRSOGLADINE MALEATE [Concomitant]
  5. AMBROXOL HYDROCHLORIDE [Concomitant]
     Dates: start: 20100429
  6. MAGNESIUM OXIDE [Concomitant]
     Dates: start: 20100512
  7. ACYCLOVIR [Concomitant]
     Dates: start: 20100611
  8. SULFAMETHOXAZOLE AND TRIMETHOPRIM [Concomitant]
     Dates: start: 20100611
  9. SODIUM GUALENATE [Concomitant]
     Dates: start: 20100503
  10. RITUXIMAB [Suspect]
     Route: 042
     Dates: start: 20100602, end: 20100602
  11. GLYCYRRHIZIC ACID [Concomitant]
     Dates: start: 20100513
  12. DOMPERIDONE [Concomitant]
  13. HEPARIN [Concomitant]
     Dates: start: 20100610, end: 20100624
  14. RITUXIMAB [Suspect]
     Indication: DIFFUSE LARGE B-CELL LYMPHOMA
     Route: 042
     Dates: start: 20100510, end: 20100510
  15. FLUCONAZOLE [Concomitant]
     Dates: start: 20100510
  16. CEFEPIME HYDROCHLORIDE [Concomitant]
     Dates: start: 20100618, end: 20100625
  17. TREANDA [Suspect]
     Indication: DIFFUSE LARGE B-CELL LYMPHOMA
     Route: 042
     Dates: start: 20100511, end: 20100512
  18. LEVOTHYROXINE SODIUM [Concomitant]
     Dates: start: 20100428
  19. ATORVASTATIN CALCIUM [Concomitant]
  20. ETIZOLAM [Concomitant]
     Dates: start: 20100428
  21. SENNOSIDE [Concomitant]
     Dates: start: 20100515

REACTIONS (1)
  - GASTRIC CANCER [None]
